FAERS Safety Report 5137479-6 (Version None)
Quarter: 2006Q4

REPORT INFORMATION
  Report Type: 
  Country: None (occurrence: None)
  Receive Date: 20061030
  Receipt Date: 20051109
  Transmission Date: 20070319
  Serious: No
  Sender: FDA-Public Use
  Company Number: US-GLAXOSMITHKLINE-A0581588A

PATIENT
  Age: 42 Year
  Sex: Female

DRUGS (8)
  1. ADVAIR HFA [Suspect]
     Indication: ASTHMA
     Dosage: 1PUFF TWICE PER DAY
     Route: 055
  2. SINGULAIR [Concomitant]
  3. RHINOCORT [Concomitant]
  4. ASTELIN [Concomitant]
  5. PHENYLPROPANOLAMINE [Concomitant]
  6. LORATADINE [Concomitant]
  7. ALBUTEROL [Concomitant]
  8. UNKNOWN MEDICATION [Concomitant]

REACTIONS (3)
  - CHEST DISCOMFORT [None]
  - COUGH [None]
  - PHARMACEUTICAL PRODUCT COMPLAINT [None]
